FAERS Safety Report 9986822 (Version 2)
Quarter: 2014Q1

REPORT INFORMATION
  Report Type: Report from Study
  Country: DE (occurrence: DE)
  Receive Date: 20140307
  Receipt Date: 20140307
  Transmission Date: 20141002
  Serious: Yes (Hospitalization)
  Sender: FDA-Public Use
  Company Number: PHHY2013DE149584

PATIENT
  Sex: Female

DRUGS (1)
  1. EXTAVIA [Suspect]
     Indication: MULTIPLE SCLEROSIS
     Dosage: 250 UG, QOD
     Route: 058
     Dates: start: 20131122, end: 20140301

REACTIONS (9)
  - Gait disturbance [Unknown]
  - Condition aggravated [Unknown]
  - Fatigue [Unknown]
  - Chapped lips [Not Recovered/Not Resolved]
  - Influenza like illness [Recovering/Resolving]
  - Nasopharyngitis [Unknown]
  - Cough [Not Recovered/Not Resolved]
  - Injection site erythema [Unknown]
  - Drug ineffective [Not Recovered/Not Resolved]
